FAERS Safety Report 7692538 (Version 2)
Quarter: 2012Q4

REPORT INFORMATION
  Report Type: 
  Country: JP (occurrence: JP)
  Receive Date: 20101206
  Receipt Date: 20121221
  Transmission Date: 20130627
  Serious: Yes (Hospitalization, Other)
  Sender: FDA-Public Use
  Company Number: JP-SHIRE-SPV1-2010-00754

PATIENT

DRUGS (15)
  1. 405 (LANTHANUM CARBONATE) [Suspect]
     Indication: HYPERPHOSPHATAEMIA
     Dosage: 250 mg, Unknown(immediately after meals)
     Route: 048
     Dates: start: 20090610
  2. CALTAN [Concomitant]
     Indication: HYPERPHOSPHATAEMIA
     Dosage: 2000 mg, Unknown
     Route: 048
     Dates: end: 20090817
  3. CALTAN [Concomitant]
     Dosage: 1500 mg, Unknown
     Route: 048
     Dates: start: 20090817, end: 20090902
  4. CALTAN [Concomitant]
     Dosage: 1000 mg, Unknown
     Route: 048
     Dates: start: 20090902, end: 20090916
  5. CALTAN [Concomitant]
     Dosage: 500 mg, Unknown
     Route: 048
     Dates: start: 20090916, end: 20091203
  6. CALTAN [Concomitant]
     Dosage: 1000 mg, Unknown
     Route: 048
     Dates: start: 20091203
  7. ALFAROL [Concomitant]
     Indication: PRODUCT USED FOR UNKNOWN INDICATION
     Dosage: 0.75 ?g, UNK
     Route: 048
     Dates: start: 20090912, end: 20091014
  8. ALFAROL [Concomitant]
     Dosage: 1.0 ?g, 1x/week
     Route: 048
     Dates: start: 20091014, end: 20091118
  9. ALFAROL [Concomitant]
     Dosage: 0.25 ?g, Unknown
     Route: 048
     Dates: start: 20091118, end: 20091217
  10. ALFAROL [Concomitant]
     Dosage: 2.0 ?g, 1x/week
     Route: 048
     Dates: start: 20091217, end: 20100112
  11. ALFAROL [Concomitant]
     Dosage: 0.5 ?g, Unknown
     Route: 048
     Dates: start: 20100113, end: 20100518
  12. NU-LOTAN [Concomitant]
     Indication: PRODUCT USED FOR UNKNOWN INDICATION
     Dosage: 25 mg, Unknown
     Route: 048
  13. RIVOTRIL [Concomitant]
     Indication: PRODUCT USED FOR UNKNOWN INDICATION
     Dosage: 2 mg, Unknown
     Route: 048
  14. SHAKUYAKUKANZOUTOU [Concomitant]
     Indication: PRODUCT USED FOR UNKNOWN INDICATION
     Dosage: 2.5 mg, Unknown
     Route: 048
  15. ROCALTROL [Concomitant]
     Indication: PRODUCT USED FOR UNKNOWN INDICATION

REACTIONS (2)
  - Duodenal ulcer [Recovering/Resolving]
  - Arteriovenous shunt operation [Recovering/Resolving]
